FAERS Safety Report 4619321-2 (Version None)
Quarter: 2005Q1

REPORT INFORMATION
  Report Type: 
  Country: None (occurrence: None)
  Receive Date: 20050318
  Receipt Date: 20050318
  Transmission Date: 20050727
  Serious: Yes (Hospitalization)
  Sender: FDA-Public Use
  Company Number: None

PATIENT
  Sex: Female
  Weight: 53.0709 kg

DRUGS (1)
  1. LEXAPRO [Suspect]
     Indication: DEPRESSION
     Dosage: PO [4 DAYS PRIOR TO ADMISSION]
     Route: 048

REACTIONS (5)
  - BREAST CANCER FEMALE [None]
  - LETHARGY [None]
  - MENTAL STATUS CHANGES [None]
  - METASTASIS [None]
  - URINARY RETENTION [None]
